FAERS Safety Report 13776282 (Version 4)
Quarter: 2018Q1

REPORT INFORMATION
  Report Type: Spontaneous
  Country: JP (occurrence: JP)
  Receive Date: 20170721
  Receipt Date: 20180122
  Transmission Date: 20180508
  Serious: Yes (Hospitalization)
  Sender: FDA-Public Use
  Company Number: JP-JNJFOC-20170714374

PATIENT
  Age: 3 Year
  Sex: Female
  Weight: 14.2 kg

DRUGS (8)
  1. REMICADE [Suspect]
     Active Substance: INFLIXIMAB
     Indication: RHEUMATOID ARTHRITIS
     Dosage: SEVENTH DOSE
     Route: 042
     Dates: start: 20170713
  2. RHEUMATREX [Suspect]
     Active Substance: METHOTREXATE SODIUM
     Indication: JUVENILE IDIOPATHIC ARTHRITIS
     Route: 048
     Dates: start: 20160706
  3. MUCODYNE [Concomitant]
     Active Substance: CARBOCYSTEINE
     Route: 048
  4. REMICADE [Suspect]
     Active Substance: INFLIXIMAB
     Indication: RHEUMATOID ARTHRITIS
     Route: 042
     Dates: start: 20161117
  5. LIMETHASONE [Suspect]
     Active Substance: DEXAMETHASONE PALMITATE\GLYCERIN\LECITHIN\SOYBEAN OIL
     Indication: JUVENILE IDIOPATHIC ARTHRITIS
     Route: 042
     Dates: start: 20170624, end: 20170625
  6. REMICADE [Suspect]
     Active Substance: INFLIXIMAB
     Indication: RHEUMATOID ARTHRITIS
     Dosage: FIFTH DOSE
     Route: 042
     Dates: start: 20170418, end: 20170418
  7. REMICADE [Suspect]
     Active Substance: INFLIXIMAB
     Indication: RHEUMATOID ARTHRITIS
     Dosage: EIGHT DOSE
     Route: 042
     Dates: start: 20170808
  8. REMICADE [Suspect]
     Active Substance: INFLIXIMAB
     Indication: RHEUMATOID ARTHRITIS
     Dosage: 6TH DOSE
     Route: 042
     Dates: start: 20170613, end: 20170613

REACTIONS (2)
  - Sinusitis [Recovering/Resolving]
  - Pneumococcal infection [Recovered/Resolved]

NARRATIVE: CASE EVENT DATE: 20170501
